FAERS Safety Report 6065517-5 (Version None)
Quarter: 2009Q1

REPORT INFORMATION
  Report Type: 
  Country: None (occurrence: None)
  Receive Date: 20090204
  Receipt Date: 20090127
  Transmission Date: 20090719
  Serious: Yes (Other)
  Sender: FDA-Public Use
  Company Number: US-PFIZER INC-2008050522

PATIENT
  Sex: Male
  Weight: 90 kg

DRUGS (18)
  1. LYRICA [Suspect]
     Indication: FIBROMYALGIA
     Dosage: 50 MG, 1X/DAY
     Dates: start: 20080609, end: 20080612
  2. LYRICA [Suspect]
     Indication: NEUROPATHY PERIPHERAL
     Dosage: 100 MG, 2X/DAY
     Route: 048
     Dates: start: 20080101
  3. LYRICA [Suspect]
     Indication: ARTHRITIS
  4. COREG [Concomitant]
  5. LISINOPRIL [Concomitant]
  6. FUROSEMIDE [Concomitant]
  7. SEROQUEL [Concomitant]
  8. COLCHICINE [Concomitant]
  9. PROTONIX [Concomitant]
  10. GLIPIZIDE [Concomitant]
  11. VITAMINS [Concomitant]
  12. MINERALS NOS [Concomitant]
  13. PRAVASTATIN [Concomitant]
     Dosage: UNK
  14. ALL OTHER THERAPEUTIC PRODUCTS [Concomitant]
     Dosage: UNK
  15. DARVON [Concomitant]
     Dosage: UNK
  16. PRECOSE [Concomitant]
     Dosage: UNK
  17. TOPAMAX [Concomitant]
     Dosage: UNK
  18. FINASTERIDE [Concomitant]
     Dosage: UNK

REACTIONS (3)
  - DYSPHAGIA [None]
  - SOMNAMBULISM [None]
  - SOMNOLENCE [None]
